FAERS Safety Report 6943642-1 (Version None)
Quarter: 2010Q3

REPORT INFORMATION
  Report Type: 
  Country: None (occurrence: None)
  Receive Date: 20100826
  Receipt Date: 20100818
  Transmission Date: 20110219
  Serious: Yes (Hospitalization)
  Sender: FDA-Public Use
  Company Number: PHHO2010US12734

PATIENT
  Sex: Male
  Weight: 81 kg

DRUGS (6)
  1. AFINITOR [Suspect]
     Indication: COLORECTAL CANCER
     Dosage: 5 MEQ/KG, QD
     Dates: start: 20100817
  2. AVASTIN [Suspect]
     Indication: COLORECTAL CANCER
     Dosage: 10 MG/KG, Q14D
     Route: 042
     Dates: start: 20100817
  3. LBH589 LBH+CAP [Suspect]
     Indication: COLORECTAL CANCER
     Dosage: 10 MG, QD
     Route: 047
     Dates: start: 20100817
  4. LOPRESSOR [Concomitant]
  5. FLOMAX [Concomitant]
  6. ACETAMINOPHEN AND HYDROCODONE BITARTRATE [Concomitant]

REACTIONS (6)
  - CHILLS [None]
  - CONSTIPATION [None]
  - NAUSEA [None]
  - PYREXIA [None]
  - TREMOR [None]
  - VOMITING [None]
